FAERS Safety Report 5654505-6 (Version None)
Quarter: 2008Q1

REPORT INFORMATION
  Report Type: 
  Country: None (occurrence: None)
  Receive Date: 20080307
  Receipt Date: 20080225
  Transmission Date: 20080703
  Serious: Yes (Other)
  Sender: FDA-Public Use
  Company Number: CH-WYE-G00967908

PATIENT
  Age: 36 Year
  Sex: Male
  Weight: 84 kg

DRUGS (4)
  1. EFFEXOR [Suspect]
     Indication: DEPRESSION
     Dosage: VARIABLE, MAXIMUM 187.5 MG PER DAY
     Route: 065
     Dates: start: 20070417
  2. EFFEXOR [Suspect]
     Indication: PERSONALITY DISORDER
     Route: 048
     Dates: end: 20080115
  3. TRITTICO [Concomitant]
     Indication: INSOMNIA
     Route: 065
     Dates: start: 20071001
  4. TRITTICO [Concomitant]
     Indication: DEPRESSION

REACTIONS (8)
  - AGITATION [None]
  - DRUG DEPENDENCE [None]
  - DRUG WITHDRAWAL SYNDROME [None]
  - HYPERHIDROSIS [None]
  - RASH PUSTULAR [None]
  - SKIN ODOUR ABNORMAL [None]
  - SOMNOLENCE [None]
  - TREMOR [None]
